FAERS Safety Report 12239102 (Version 2)
Quarter: 2016Q2

REPORT INFORMATION
  Report Type: Report from Study
  Country: CA (occurrence: CA)
  Receive Date: 20160405
  Receipt Date: 20160414
  Transmission Date: 20160815
  Serious: Yes (Hospitalization, Other)
  Sender: FDA-Public Use
  Company Number: PHHY2016CA030739

PATIENT
  Sex: Male

DRUGS (4)
  1. SUNITINIB [Concomitant]
     Active Substance: SUNITINIB
     Indication: PRODUCT USED FOR UNKNOWN INDICATION
     Route: 065
  2. AMOXICLAV [Concomitant]
     Active Substance: AMOXICILLIN\CLAVULANIC ACID
     Indication: PRODUCT USED FOR UNKNOWN INDICATION
     Dosage: 875/125 MG, BID FOR 6 WEEKS
     Route: 048
  3. CIPROFLOXACIN. [Concomitant]
     Active Substance: CIPROFLOXACIN
     Indication: PRODUCT USED FOR UNKNOWN INDICATION
     Dosage: 500 MG, BID FOR 6 WEEKS
     Route: 048
  4. SANDOSTATIN LAR DEPOT [Suspect]
     Active Substance: OCTREOTIDE ACETATE
     Indication: PANCREATIC NEUROENDOCRINE TUMOUR METASTATIC
     Dosage: 30 MG, QMO
     Route: 030
     Dates: start: 20160205

REACTIONS (12)
  - Body temperature decreased [Unknown]
  - Heart rate decreased [Unknown]
  - Dysgeusia [Unknown]
  - Blood glucose decreased [Unknown]
  - Fatigue [Not Recovered/Not Resolved]
  - Hypoglycaemia [Unknown]
  - Pyrexia [Unknown]
  - Sepsis [Unknown]
  - Jaundice [Unknown]
  - Total bile acids increased [Unknown]
  - Blood pressure increased [Unknown]
  - Drug ineffective [Unknown]
